FAERS Safety Report 5308373-2 (Version None)
Quarter: 2007Q2

REPORT INFORMATION
  Report Type: 
  Country: None (occurrence: None)
  Receive Date: 20070423
  Receipt Date: 20070413
  Transmission Date: 20071010
  Serious: Yes (Other)
  Sender: FDA-Public Use
  Company Number: 2007BI007324

PATIENT
  Age: 29 Year
  Sex: Female

DRUGS (9)
  1. NATALIZUMAB [Suspect]
     Indication: MULTIPLE SCLEROSIS
     Dosage: 300 MG;QW; IV
     Route: 042
     Dates: start: 20061107
  2. NEXIUM [Concomitant]
  3. FOSAMAX [Concomitant]
  4. NEURONTIN [Concomitant]
  5. VESICARE [Concomitant]
  6. IBUPROFEN [Concomitant]
  7. RESTORIL [Concomitant]
  8. MIDODRINE [Concomitant]
  9. BACLOFEN [Concomitant]

REACTIONS (3)
  - ABORTION SPONTANEOUS [None]
  - DRUG EXPOSURE DURING PREGNANCY [None]
  - PREGNANCY WITH CONTRACEPTIVE PATCH [None]
